FAERS Safety Report 9044152 (Version 1)
Quarter: 2013Q1

REPORT INFORMATION
  Report Type: Report from Study
  Country: US (occurrence: US)
  Receive Date: 20130130
  Receipt Date: 20130130
  Transmission Date: 20140127
  Serious: No
  Sender: FDA-Public Use
  Company Number: US-ABBOTT-12P-163-0954929-00

PATIENT
  Age: 37 Year
  Sex: Male

DRUGS (3)
  1. HUMIRA 40 MG/0.8 ML PEN [Suspect]
     Indication: PSORIASIS
     Dates: start: 201201
  2. WELLBUTRIN [Concomitant]
     Indication: ANXIETY
     Dosage: 60MG (NOT SURE) DAILY
     Route: 048
  3. ZRYBRD [Concomitant]
     Indication: ANXIETY
     Dosage: 40MG DAILY
     Route: 048

REACTIONS (2)
  - Injection site bruising [Recovered/Resolved]
  - Injection site erythema [Recovered/Resolved]
